FAERS Safety Report 25884609 (Version 1)
Quarter: 2025Q4

REPORT INFORMATION
  Report Type: Spontaneous
  Country: US (occurrence: None)
  Receive Date: 20251003
  Receipt Date: 20251003
  Transmission Date: 20260117
  Serious: Yes (Hospitalization)
  Sender: FDA-CTU
  Company Number: None

PATIENT
  Age: 65 Year
  Sex: Female

DRUGS (24)
  1. ENVARSUS XR [Suspect]
     Active Substance: TACROLIMUS
     Indication: Renal transplant
     Dosage: 2.25 MG DAILY ORAL AS DIRECTED?
     Route: 048
     Dates: start: 20250711
  2. MYCOPHENOLATE MOFETIL [Suspect]
     Active Substance: MYCOPHENOLATE MOFETIL
     Indication: Renal transplant
     Dosage: FREQUENCY : TWICE A DAY;?
     Route: 048
     Dates: start: 20250512
  3. VANCOMYCIN [Concomitant]
     Active Substance: VANCOMYCIN
  4. POTASSIUM [Concomitant]
     Active Substance: POTASSIUM
  5. TRAMADOL [Concomitant]
     Active Substance: TRAMADOL
  6. ARANESP [Concomitant]
     Active Substance: DARBEPOETIN ALFA
  7. CIPROFLOXACIN [Concomitant]
     Active Substance: CIPROFLOXACIN
  8. CARVEDILOL [Concomitant]
     Active Substance: CARVEDILOL
  9. ONDANSETRON [Concomitant]
     Active Substance: ONDANSETRON
  10. DOXAZOSIN [Concomitant]
     Active Substance: DOXAZOSIN MESYLATE
  11. FERROUS SULFATE [Concomitant]
     Active Substance: FERROUS SULFATE
  12. SODIUM BICARBONATE [Concomitant]
     Active Substance: SODIUM BICARBONATE
  13. HYDRALAZINE [Concomitant]
     Active Substance: HYDRALAZINE HYDROCHLORIDE
  14. MAGNESIUM OXIDE [Concomitant]
     Active Substance: MAGNESIUM OXIDE
  15. FUROSEMIDE [Concomitant]
     Active Substance: FUROSEMIDE
  16. FLUCONAZOLE [Concomitant]
     Active Substance: FLUCONAZOLE
  17. CEPHALEXIN [Concomitant]
     Active Substance: CEPHALEXIN
  18. FAMOTIDINE [Concomitant]
     Active Substance: FAMOTIDINE
  19. K PHOS NEUTRAL [Concomitant]
     Active Substance: POTASSIUM PHOSPHATE, MONOBASIC\SODIUM PHOSPHATE, DIBASIC, ANHYDROUS\SODIUM PHOSPHATE, MONOBASIC, MON
  20. NIFEDIPINE [Concomitant]
     Active Substance: NIFEDIPINE
  21. DOCUSATE SODIUM [Concomitant]
     Active Substance: DOCUSATE SODIUM
  22. VALGANCICLOVIR [Concomitant]
     Active Substance: VALGANCICLOVIR
  23. ATOVAQUONE [Concomitant]
     Active Substance: ATOVAQUONE
  24. PREDNISONE [Concomitant]
     Active Substance: PREDNISONE

REACTIONS (1)
  - Clostridium difficile infection [None]

NARRATIVE: CASE EVENT DATE: 20250924
